FAERS Safety Report 4922317-4 (Version None)
Quarter: 2006Q1

REPORT INFORMATION
  Report Type: 
  Country: None (occurrence: None)
  Receive Date: 20060224
  Receipt Date: 20050602
  Transmission Date: 20060701
  Serious: Yes (Hospitalization)
  Sender: FDA-Public Use
  Company Number: US-MERCK-0506USA00688

PATIENT
  Age: 74 Year
  Sex: Female
  Weight: 92 kg

DRUGS (2)
  1. VIOXX [Suspect]
     Indication: ARTHRITIS
     Route: 048
     Dates: start: 20010101, end: 20041001
  2. VIOXX [Suspect]
     Route: 048
     Dates: start: 20010101, end: 20041001

REACTIONS (6)
  - CARDIAC VALVE DISEASE [None]
  - CATARACT OPERATION [None]
  - CHEST PAIN [None]
  - DYSPNOEA [None]
  - INJURY [None]
  - VASCULAR RUPTURE [None]
